FAERS Safety Report 14709424 (Version 1)
Quarter: 2018Q2

REPORT INFORMATION
  Report Type: Spontaneous
  Country: RO (occurrence: RO)
  Receive Date: 20180403
  Receipt Date: 20180403
  Transmission Date: 20180711
  Serious: Yes (Other)
  Sender: FDA-Public Use
  Company Number: RO-PFIZER INC-2018131149

PATIENT
  Age: 77 Year
  Sex: Male
  Weight: 63 kg

DRUGS (2)
  1. SUTENT [Suspect]
     Active Substance: SUNITINIB MALATE
     Indication: RENAL NEOPLASM
     Dosage: 37.5 UNK, UNK
     Dates: end: 20171117
  2. EUTHYROX [Concomitant]
     Active Substance: LEVOTHYROXINE SODIUM
     Dosage: 100 UG, 1X/DAY, MORNING

REACTIONS (1)
  - Klebsiella infection [Unknown]

NARRATIVE: CASE EVENT DATE: 20171117
